FAERS Safety Report 7864597-1 (Version None)
Quarter: 2011Q4

REPORT INFORMATION
  Report Type: 
  Country: None (occurrence: None)
  Receive Date: 20111028
  Receipt Date: 20110412
  Transmission Date: 20120403
  Serious: No
  Sender: FDA-Public Use
  Company Number: US-GLAXOSMITHKLINE-A0923439A

PATIENT
  Age: 13 Year
  Sex: Female
  Weight: 38.2 kg

DRUGS (6)
  1. SUMATRIPTAN SUCCINATE [Suspect]
     Indication: MIGRAINE
     Dosage: 5MG UNKNOWN
     Route: 045
     Dates: start: 20110410, end: 20110410
  2. ZOFRAN [Concomitant]
     Indication: CYCLIC VOMITING SYNDROME
  3. PRILOSEC [Concomitant]
     Indication: GASTROOESOPHAGEAL REFLUX DISEASE
  4. ELAVIL [Concomitant]
     Indication: MIGRAINE
     Dosage: 40MG AT NIGHT
  5. ATIVAN [Concomitant]
     Dosage: 1MG AS REQUIRED
  6. NOVOLOG [Concomitant]
     Indication: DIABETES MELLITUS

REACTIONS (4)
  - DYSGEUSIA [None]
  - PRODUCT QUALITY ISSUE [None]
  - BLOOD GLUCOSE DECREASED [None]
  - FEELING ABNORMAL [None]
